FAERS Safety Report 25546006 (Version 1)
Quarter: 2025Q3

REPORT INFORMATION
  Report Type: Spontaneous
  Country: EU (occurrence: EU)
  Receive Date: 20250712
  Receipt Date: 20250712
  Transmission Date: 20251021
  Serious: Yes (Other)
  Sender: ORGANON
  Company Number: None

PATIENT
  Age: 67 Year
  Sex: Male
  Weight: 78 kg

DRUGS (5)
  1. EZETIMIBE [Suspect]
     Active Substance: EZETIMIBE
     Indication: Hypercholesterolaemia
     Dosage: 10 MILLIGRAM, QD
     Route: 048
     Dates: start: 20231003, end: 20240708
  2. FENOFIBRATE [Concomitant]
     Active Substance: FENOFIBRATE
     Indication: Hypercholesterolaemia
     Dosage: 145 MILLIGRAM, QD
     Route: 048
     Dates: start: 20240125
  3. ENAP [ENALAPRILAT] [Concomitant]
     Indication: Essential hypertension
     Dosage: 10 MILLIGRAM, QD
     Route: 048
     Dates: start: 2021
  4. MOXONIDINE [Concomitant]
     Active Substance: MOXONIDINE
     Indication: Essential hypertension
     Dosage: 0.2 MILLIGRAM, QD
     Route: 048
     Dates: start: 20231003
  5. AMLODIPINE\INDAPAMIDE\PERINDOPRIL [Concomitant]
     Active Substance: AMLODIPINE\INDAPAMIDE\PERINDOPRIL
     Indication: Essential hypertension
     Dosage: 1 DF = EACH TABLET CONTAINS 4 MG PERINDOPRIL TERT-BUTYLAMINE, EQUIVALENT TO 3.34 MG PERINDOPRIL, 1.2
     Route: 048
     Dates: start: 20231003

REACTIONS (3)
  - Polyneuropathy [Recovered/Resolved]
  - Paraesthesia [Recovered/Resolved]
  - Burning sensation [Recovered/Resolved]

NARRATIVE: CASE EVENT DATE: 20231003
